FAERS Safety Report 11746067 (Version 1)
Quarter: 2015Q4

REPORT INFORMATION
  Report Type: Spontaneous
  Country: GB (occurrence: GB)
  Receive Date: 20151117
  Receipt Date: 20151117
  Transmission Date: 20160304
  Serious: Yes (Other)
  Sender: FDA-Public Use
  Company Number: GB-TEVA-607196ACC

PATIENT
  Age: 68 Year
  Sex: Male

DRUGS (7)
  1. AMIODARONE [Suspect]
     Active Substance: AMIODARONE
  2. ISOSORBIDE MONONITRATE. [Concomitant]
     Active Substance: ISOSORBIDE MONONITRATE
  3. APIXABAN [Concomitant]
     Active Substance: APIXABAN
  4. RAMIPRIL. [Suspect]
     Active Substance: RAMIPRIL
  5. SIMVASTATIN. [Suspect]
     Active Substance: SIMVASTATIN
  6. LANSOPRAZOLE. [Suspect]
     Active Substance: LANSOPRAZOLE
  7. BISOPROLOL [Concomitant]
     Active Substance: BISOPROLOL

REACTIONS (1)
  - Hirsutism [Unknown]
